FAERS Safety Report 11729131 (Version 3)
Quarter: 2016Q1

REPORT INFORMATION
  Report Type: Spontaneous
  Country: GR (occurrence: GR)
  Receive Date: 20151112
  Receipt Date: 20160113
  Transmission Date: 20160525
  Serious: Yes (Death)
  Sender: FDA-Public Use
  Company Number: GR-JNJFOC-20151102810

PATIENT
  Age: 71 Year
  Sex: Male
  Weight: 87 kg

DRUGS (6)
  1. LOSARTAN. [Concomitant]
     Active Substance: LOSARTAN
     Route: 065
  2. METFORMIN [Concomitant]
     Active Substance: METFORMIN HYDROCHLORIDE
     Dosage: TAKEN FOR OVER FIVE YEARS
     Route: 065
  3. YONDELIS [Suspect]
     Active Substance: TRABECTEDIN
     Route: 065
  4. YONDELIS [Suspect]
     Active Substance: TRABECTEDIN
     Indication: SOFT TISSUE SARCOMA
     Dosage: CYCLES 1-32. ACTUAL DOSE 3MG
     Route: 065
     Dates: start: 20130930, end: 20150916
  5. DEXAMETHASONE. [Concomitant]
     Active Substance: DEXAMETHASONE
     Indication: PREMEDICATION
     Route: 065
  6. BEMIPARIN [Concomitant]
     Dosage: DURING CHEMOTHERAPY
     Route: 058
     Dates: start: 201309

REACTIONS (1)
  - Acute myeloid leukaemia [Fatal]
